FAERS Safety Report 13123156 (Version 1)
Quarter: 2017Q1

REPORT INFORMATION
  Report Type: Spontaneous
  Country: DE (occurrence: DE)
  Receive Date: 20170117
  Receipt Date: 20170117
  Transmission Date: 20170428
  Serious: Yes (Other)
  Sender: FDA-Public Use
  Company Number: DE-ALLERGAN-1701795US

PATIENT
  Age: 1 Day
  Sex: Male
  Weight: 2.45 kg

DRUGS (4)
  1. ESCITALOPRAM OXALATE - BP [Suspect]
     Active Substance: ESCITALOPRAM OXALATE
     Indication: DEPRESSION
     Dosage: 5 MG, UNK
     Route: 064
     Dates: start: 20160222
  2. ESCITALOPRAM OXALATE - BP [Suspect]
     Active Substance: ESCITALOPRAM OXALATE
     Dosage: 10 MG/D  UNTIL WEEK 24+3 AND FROM UNKNOWN DATE THEN 10MG/D UNTILDELIVERY
     Route: 064
     Dates: end: 20160712
  3. ELEVIT [Concomitant]
     Active Substance: FOLIC ACID\IRON\MINERALS\VITAMINS
     Indication: PROPHYLAXIS OF NEURAL TUBE DEFECT
     Route: 064
  4. FLUOXETINE [Concomitant]
     Active Substance: FLUOXETINE HYDROCHLORIDE
     Indication: DEPRESSION
     Route: 064
     Dates: start: 20151013, end: 20160125

REACTIONS (3)
  - Foetal exposure during pregnancy [Recovered/Resolved]
  - Temperature regulation disorder [Recovered/Resolved]
  - Small for dates baby [Recovering/Resolving]

NARRATIVE: CASE EVENT DATE: 20160712
